FAERS Safety Report 9381467 (Version 2)
Quarter: 2013Q3

REPORT INFORMATION
  Report Type: Report from Study
  Country: AU (occurrence: AU)
  Receive Date: 20130703
  Receipt Date: 20130731
  Transmission Date: 20140515
  Serious: Yes (Hospitalization, Other)
  Sender: FDA-Public Use
  Company Number: PHHY2013AU068183

PATIENT
  Sex: Female

DRUGS (1)
  1. CLOZARIL [Suspect]
     Dosage: 125 MG
     Dates: start: 19990624

REACTIONS (7)
  - Myocarditis [Unknown]
  - Cardiac failure congestive [Unknown]
  - Ventricular dysfunction [Unknown]
  - Joint swelling [Unknown]
  - Dyspnoea [Unknown]
  - Pulmonary embolism [Unknown]
  - Pneumonia [Unknown]
